FAERS Safety Report 5778868-6 (Version None)
Quarter: 2008Q2

REPORT INFORMATION
  Report Type: 
  Country: None (occurrence: None)
  Receive Date: 20080619
  Receipt Date: 20080609
  Transmission Date: 20081010
  Serious: Yes (Other)
  Sender: FDA-Public Use
  Company Number: US-JNJFOC-20080602769

PATIENT
  Sex: Male

DRUGS (9)
  1. RISPERDAL [Suspect]
     Indication: PAIN
     Route: 048
  2. PENTETRAZOL [Concomitant]
     Indication: DRUG USE FOR UNKNOWN INDICATION
  3. LUNESTA [Concomitant]
     Indication: SLEEP DISORDER
  4. LYRICA [Concomitant]
  5. MIRTAZAPINE [Concomitant]
     Indication: DRUG USE FOR UNKNOWN INDICATION
  6. ARICEPT [Concomitant]
  7. CODEINE [Concomitant]
     Indication: MULTIPLE ALLERGIES
  8. ACETAMINOPHEN [Concomitant]
     Indication: PAIN
  9. CLARINEX [Concomitant]
     Indication: MULTIPLE ALLERGIES

REACTIONS (3)
  - ANGER [None]
  - HALLUCINATION [None]
  - PARANOIA [None]
